FAERS Safety Report 21001191 (Version 1)
Quarter: 2022Q2

REPORT INFORMATION
  Report Type: Spontaneous
  Country: US (occurrence: US)
  Receive Date: 20220624
  Receipt Date: 20220624
  Transmission Date: 20220721
  Serious: No
  Sender: FDA-Public Use
  Company Number: US-BioHaven Pharmaceuticals-2022BHV000821

PATIENT
  Age: 26 Year
  Sex: Female

DRUGS (1)
  1. NURTEC ODT [Suspect]
     Active Substance: RIMEGEPANT SULFATE
     Indication: Product used for unknown indication
     Dosage: HER LAST DOSE WAS ON 19-MARCH-2022. NOT SURE IF SHE IS GOING TO DISCONTINUE IT.
     Route: 065
     Dates: start: 20220314

REACTIONS (1)
  - Dizziness [Recovered/Resolved]
